FAERS Safety Report 6263578-1 (Version None)
Quarter: 2009Q3

REPORT INFORMATION
  Report Type: 
  Country: None (occurrence: None)
  Receive Date: 20090710
  Receipt Date: 20090507
  Transmission Date: 20100115
  Serious: No
  Sender: FDA-Public Use
  Company Number: A0783006A

PATIENT
  Age: 60 Year
  Sex: Female

DRUGS (8)
  1. TYKERB [Suspect]
     Indication: BREAST CANCER
     Dosage: 1250MG PER DAY
     Route: 048
     Dates: start: 20090410
  2. XELODA [Concomitant]
  3. DEPAKOTE [Concomitant]
  4. RITALIN [Concomitant]
  5. KEPPRA [Concomitant]
  6. WARFARIN SODIUM [Concomitant]
  7. LEXAPRO [Concomitant]
  8. POTASSIUM CHLORIDE [Concomitant]

REACTIONS (4)
  - DECREASED APPETITE [None]
  - GINGIVAL SWELLING [None]
  - MUSCLE SPASMS [None]
  - OEDEMA MOUTH [None]
